FAERS Safety Report 5705461-3 (Version None)
Quarter: 2008Q2

REPORT INFORMATION
  Report Type: 
  Country: None (occurrence: None)
  Receive Date: 20080410
  Receipt Date: 20080328
  Transmission Date: 20081010
  Serious: Yes (Hospitalization)
  Sender: FDA-Public Use
  Company Number: 6041866

PATIENT
  Age: 53 Year
  Sex: Male

DRUGS (3)
  1. LODOZ (TABLET) (HYDROCHLOROTHIAZIDE, BISOPROLOL FUMARATE) [Suspect]
     Indication: DRUG USE FOR UNKNOWN INDICATION
     Dosage: NOT REPORTED, NOT REPORTED, NOT REPORTED; ORAL
     Route: 048
  2. NEXIUM [Suspect]
     Indication: DRUG USE FOR UNKNOWN INDICATION
     Dosage: NOT REPORTED, NOT REPORTED, NOT REPORTED;
     Dates: end: 20080308
  3. DEROXAT (TABLET) (PAROXETINE HYDROCHLORIDE) [Concomitant]

REACTIONS (5)
  - ANDROGEN DEFICIENCY [None]
  - DEPRESSION [None]
  - ERECTILE DYSFUNCTION [None]
  - HYPERPROLACTINAEMIA [None]
  - LIBIDO DECREASED [None]
